FAERS Safety Report 4436479-9 (Version None)
Quarter: 2004Q3

REPORT INFORMATION
  Report Type: 
  Country: None (occurrence: None)
  Receive Date: 20040830
  Receipt Date: 20040517
  Transmission Date: 20050211
  Serious: Yes (Other)
  Sender: FDA-Public Use
  Company Number: US-BRISTOL-MYERS SQUIBB COMPANY-12596094

PATIENT
  Age: 9 Year
  Sex: Male

DRUGS (4)
  1. ABILIFY [Suspect]
     Indication: AFFECTIVE DISORDER
     Dosage: 25-MAR-04 = 5 MG QD FOR 1 WK, THEN INCR TO 2 TABS; 15MG 06-MAY-04; 5MG BID 24-MAY-04
     Route: 048
     Dates: start: 20040325
  2. ABILIFY [Suspect]
     Indication: ABNORMAL BEHAVIOUR
     Dosage: 25-MAR-04 = 5 MG QD FOR 1 WK, THEN INCR TO 2 TABS; 15MG 06-MAY-04; 5MG BID 24-MAY-04
     Route: 048
     Dates: start: 20040325
  3. CONCERTA [Concomitant]
     Indication: ATTENTION DEFICIT/HYPERACTIVITY DISORDER
  4. CLONIDINE HCL [Concomitant]
     Indication: ATTENTION DEFICIT/HYPERACTIVITY DISORDER

REACTIONS (1)
  - EXTRAPYRAMIDAL DISORDER [None]
